FAERS Safety Report 7866114-9 (Version None)
Quarter: 2011Q4

REPORT INFORMATION
  Report Type: 
  Country: None (occurrence: None)
  Receive Date: 20111028
  Receipt Date: 20110426
  Transmission Date: 20120403
  Serious: No
  Sender: FDA-Public Use
  Company Number: US-GLAXOSMITHKLINE-A0924586A

PATIENT
  Age: 59 Year
  Sex: Female

DRUGS (5)
  1. VENTOLIN HFA [Concomitant]
  2. NEXIUM [Concomitant]
  3. ADVAIR DISKUS 100/50 [Suspect]
     Indication: BRONCHITIS
     Dosage: 1PUFF TWICE PER DAY
     Route: 055
     Dates: start: 20100401
  4. AVAPRO [Concomitant]
  5. ROPINIROLE [Concomitant]

REACTIONS (3)
  - WHEEZING [None]
  - PRODUCT QUALITY ISSUE [None]
  - DYSPNOEA EXERTIONAL [None]
